FAERS Safety Report 7609364-9 (Version None)
Quarter: 2011Q3

REPORT INFORMATION
  Report Type: 
  Country: None (occurrence: None)
  Receive Date: 20110714
  Receipt Date: 20110707
  Transmission Date: 20111222
  Serious: Yes (Other)
  Sender: FDA-Public Use
  Company Number: PHHY2011DE52818

PATIENT
  Sex: Female

DRUGS (6)
  1. DIOVAN [Concomitant]
  2. LORAZEPAM [Concomitant]
  3. OXAZEPAM [Concomitant]
  4. ZOPICLONE [Concomitant]
  5. ZOMETA [Suspect]
     Dosage: 4 MG EVERY 4 WEEK
     Route: 042
     Dates: start: 20100401
  6. BELOC [Concomitant]

REACTIONS (4)
  - SUICIDE ATTEMPT [None]
  - STRESS [None]
  - DRUG THERAPY CHANGED [None]
  - MULTIPLE DRUG OVERDOSE INTENTIONAL [None]
